FAERS Safety Report 5284975-7 (Version None)
Quarter: 2007Q1

REPORT INFORMATION
  Report Type: 
  Country: None (occurrence: None)
  Receive Date: 20061226
  Receipt Date: 20060710
  Transmission Date: 20070707
  Serious: Yes (Hospitalization, Other)
  Sender: FDA-Public Use
  Company Number: WAES 0607USA01645

PATIENT
  Age: 78 Year
  Sex: Female
  Weight: 66.6788 kg

DRUGS (8)
  1. ZETIA [Suspect]
     Indication: HYPERLIPIDAEMIA
     Dosage: 10 MG/DAILY/PO
     Route: 048
     Dates: start: 20060907
  2. ACTONEL [Concomitant]
  3. DETROL [Concomitant]
  4. LEXAPRO [Concomitant]
  5. PLETAL [Concomitant]
  6. PREMARIN [Concomitant]
  7. PRILOSEC [Concomitant]
  8. SYNTHROID [Concomitant]

REACTIONS (2)
  - CHOLECYSTITIS [None]
  - CHOLELITHIASIS [None]
